FAERS Safety Report 7883622-5 (Version None)
Quarter: 2011Q4

REPORT INFORMATION
  Report Type: 
  Country: None (occurrence: None)
  Receive Date: 20111102
  Receipt Date: 20111031
  Transmission Date: 20120403
  Serious: Yes (Other)
  Sender: FDA-Public Use
  Company Number: AT-BAYER-2011-098402

PATIENT
  Age: 45 Year
  Sex: Female

DRUGS (1)
  1. MIRENA [Suspect]
     Indication: CONTRACEPTION
     Dosage: 20 MCG/24HR, CONT
     Route: 015
     Dates: start: 20090507, end: 20110823

REACTIONS (4)
  - CERVIX CANCER METASTATIC [None]
  - GENERAL PHYSICAL HEALTH DETERIORATION [None]
  - ABDOMINAL PAIN [None]
  - GENITAL HAEMORRHAGE [None]
